FAERS Safety Report 14742010 (Version 1)
Quarter: 2018Q2

REPORT INFORMATION
  Report Type: Spontaneous
  Country: US (occurrence: US)
  Receive Date: 20180410
  Receipt Date: 20180410
  Transmission Date: 20180711
  Serious: No
  Sender: FDA-Public Use
  Company Number: US-BAUSCH-BL-2017-021554

PATIENT
  Sex: Female
  Weight: 68.1 kg

DRUGS (2)
  1. FLUNISOLIDE NASAL SOLUTION USP 0.025% [Suspect]
     Active Substance: FLUNISOLIDE
     Indication: SEASONAL ALLERGY
     Dosage: 1-2 SPRAYS IN EACH NOSTRIL ONCE TO TWICE DAILY, STARTED OVER 20 YEARS AGO
     Route: 045
  2. LISINOPRIL. [Concomitant]
     Active Substance: LISINOPRIL
     Indication: HYPERTENSION
     Route: 048
     Dates: start: 1995

REACTIONS (1)
  - Drug ineffective [Not Recovered/Not Resolved]
